FAERS Safety Report 15603760 (Version 2)
Quarter: 2018Q4

REPORT INFORMATION
  Report Type: Spontaneous
  Country: US (occurrence: US)
  Receive Date: 20181109
  Receipt Date: 20181207
  Transmission Date: 20190205
  Serious: No
  Sender: FDA-Public Use
  Company Number: US-PFIZER INC-2018461668

PATIENT
  Sex: Female

DRUGS (1)
  1. DILANTIN [Suspect]
     Active Substance: PHENYTOIN
     Dosage: 50 MG, TWICE A DAY
     Route: 048
     Dates: start: 2008, end: 201611

REACTIONS (2)
  - Drug hypersensitivity [Unknown]
  - Dizziness [Unknown]
